FAERS Safety Report 4731072-2 (Version None)
Quarter: 2005Q3

REPORT INFORMATION
  Report Type: 
  Country: None (occurrence: None)
  Receive Date: 20050726
  Receipt Date: 20041130
  Transmission Date: 20060218
  Serious: Yes (Hospitalization)
  Sender: FDA-Public Use
  Company Number: 05GER0011

PATIENT

DRUGS (1)
  1. AGGRASTAT [Suspect]
     Indication: ACUTE CORONARY SYNDROME

REACTIONS (1)
  - HAEMATEMESIS [None]
